FAERS Safety Report 11470616 (Version 2)
Quarter: 2015Q3

REPORT INFORMATION
  Report Type: Spontaneous
  Country: US (occurrence: US)
  Receive Date: 20150908
  Receipt Date: 20150908
  Transmission Date: 20151125
  Serious: Yes (Hospitalization)
  Sender: FDA-Public Use
  Company Number: US-FRESENIUS KABI-FK201504225

PATIENT
  Age: 24 Year
  Sex: Male

DRUGS (8)
  1. VANCOMYCIN [Concomitant]
     Active Substance: VANCOMYCIN
     Indication: ENCEPHALITIS
  2. FLUCONAZOLE. [Concomitant]
     Active Substance: FLUCONAZOLE
     Indication: EVIDENCE BASED TREATMENT
     Route: 065
  3. LEVETIRACETAM (MANUFACTURER UNKNOWN) [Suspect]
     Active Substance: LEVETIRACETAM
     Indication: SEIZURE
     Route: 065
  4. GENTAMICIN. [Concomitant]
     Active Substance: GENTAMICIN
     Indication: EVIDENCE BASED TREATMENT
     Route: 065
  5. VANCOMYCIN [Concomitant]
     Active Substance: VANCOMYCIN
     Indication: EVIDENCE BASED TREATMENT
     Route: 065
  6. LEVETIRACETAM (MANUFACTURER UNKNOWN) [Suspect]
     Active Substance: LEVETIRACETAM
     Indication: ENCEPHALOPATHY
     Route: 065
  7. VANCOMYCIN [Concomitant]
     Active Substance: VANCOMYCIN
     Indication: MENINGITIS
  8. ERTAPENEM [Concomitant]
     Active Substance: ERTAPENEM
     Indication: EVIDENCE BASED TREATMENT
     Route: 065

REACTIONS (2)
  - Eosinophilia [Recovered/Resolved]
  - Pyrexia [Recovered/Resolved]
